FAERS Safety Report 4292522-1 (Version None)
Quarter: 2004Q1

REPORT INFORMATION
  Report Type: 
  Country: None (occurrence: None)
  Receive Date: 20040211
  Receipt Date: 20040128
  Transmission Date: 20041129
  Serious: Yes (Hospitalization)
  Sender: FDA-Public Use
  Company Number: NO-BRISTOL-MYERS SQUIBB COMPANY-12501805

PATIENT
  Age: 78 Year
  Sex: Female

DRUGS (4)
  1. SINEMET [Suspect]
     Indication: PARKINSON'S DISEASE
     Dosage: DOSE VALUE: 25/100 MG DOSAGE FORM, 37.5/150 MG
     Route: 048
  2. ELDEPRYL [Suspect]
     Indication: PARKINSON'S DISEASE
     Route: 048
  3. SEROXAT [Suspect]
     Indication: DEPRESSION
     Route: 048
  4. TOLVON [Suspect]
     Indication: DEPRESSION
     Route: 048

REACTIONS (2)
  - OVERDOSE [None]
  - SEROTONIN SYNDROME [None]
